FAERS Safety Report 12917868 (Version 2)
Quarter: 2017Q3

REPORT INFORMATION
  Report Type: Spontaneous
  Country: CA (occurrence: CA)
  Receive Date: 20161107
  Receipt Date: 20170712
  Transmission Date: 20171127
  Serious: Yes (Hospitalization, Other)
  Sender: FDA-Public Use
  Company Number: CA-ABBVIE-16K-028-1774740-00

PATIENT
  Sex: Female

DRUGS (42)
  1. HUMIRA [Suspect]
     Active Substance: ADALIMUMAB
     Indication: MOBILITY DECREASED
  2. ARAVA [Suspect]
     Active Substance: LEFLUNOMIDE
     Indication: MOBILITY DECREASED
  3. ARAVA [Suspect]
     Active Substance: LEFLUNOMIDE
     Indication: JOINT STIFFNESS
  4. ASPIRIN. [Suspect]
     Active Substance: ASPIRIN
     Indication: RHEUMATOID ARTHRITIS
     Route: 065
  5. VOLTAREN [Suspect]
     Active Substance: DICLOFENAC SODIUM
     Indication: MOBILITY DECREASED
  6. VOLTAREN [Suspect]
     Active Substance: DICLOFENAC SODIUM
     Indication: JOINT STIFFNESS
  7. NAPROSYN [Suspect]
     Active Substance: NAPROXEN
     Indication: PAIN
  8. NAPROSYN [Suspect]
     Active Substance: NAPROXEN
     Indication: MOBILITY DECREASED
  9. NAPROSYN [Suspect]
     Active Substance: NAPROXEN
     Indication: JOINT STIFFNESS
  10. ASPIRIN. [Suspect]
     Active Substance: ASPIRIN
     Indication: JOINT STIFFNESS
  11. VOLTAREN [Suspect]
     Active Substance: DICLOFENAC SODIUM
     Indication: RHEUMATOID ARTHRITIS
     Route: 065
  12. MOTRIN [Suspect]
     Active Substance: IBUPROFEN
     Indication: RHEUMATOID ARTHRITIS
     Route: 065
  13. HUMIRA [Suspect]
     Active Substance: ADALIMUMAB
     Indication: JOINT STIFFNESS
  14. HUMIRA [Suspect]
     Active Substance: ADALIMUMAB
     Indication: OFF LABEL USE
  15. ENBREL [Suspect]
     Active Substance: ETANERCEPT
     Indication: MOBILITY DECREASED
  16. GOLD [Suspect]
     Active Substance: GOLD
     Indication: MOBILITY DECREASED
  17. GOLD [Suspect]
     Active Substance: GOLD
     Indication: JOINT STIFFNESS
  18. METHOTREXATE. [Suspect]
     Active Substance: METHOTREXATE
     Indication: RHEUMATOID ARTHRITIS
     Route: 065
  19. MOTRIN [Suspect]
     Active Substance: IBUPROFEN
     Indication: JOINT STIFFNESS
  20. GOLD [Suspect]
     Active Substance: GOLD
     Indication: RHEUMATOID ARTHRITIS
     Route: 065
  21. ASPIRIN. [Suspect]
     Active Substance: ASPIRIN
     Indication: MOBILITY DECREASED
  22. MOTRIN [Suspect]
     Active Substance: IBUPROFEN
     Indication: PAIN
  23. HUMIRA [Suspect]
     Active Substance: ADALIMUMAB
     Indication: RHEUMATOID ARTHRITIS
     Route: 058
  24. ENBREL [Suspect]
     Active Substance: ETANERCEPT
     Indication: RHEUMATOID ARTHRITIS
     Route: 065
  25. ARAVA [Suspect]
     Active Substance: LEFLUNOMIDE
     Indication: RHEUMATOID ARTHRITIS
     Route: 065
  26. METHOTREXATE. [Suspect]
     Active Substance: METHOTREXATE
     Indication: MOBILITY DECREASED
  27. METHOTREXATE. [Suspect]
     Active Substance: METHOTREXATE
     Indication: JOINT STIFFNESS
  28. MOTRIN [Suspect]
     Active Substance: IBUPROFEN
     Indication: MOBILITY DECREASED
  29. PLAQUENIL [Suspect]
     Active Substance: HYDROXYCHLOROQUINE SULFATE
     Indication: JOINT STIFFNESS
  30. ENBREL [Suspect]
     Active Substance: ETANERCEPT
     Indication: PAIN
  31. ARAVA [Suspect]
     Active Substance: LEFLUNOMIDE
     Indication: PAIN
  32. ASPIRIN. [Suspect]
     Active Substance: ASPIRIN
     Indication: PAIN
  33. NAPROSYN [Suspect]
     Active Substance: NAPROXEN
     Indication: RHEUMATOID ARTHRITIS
     Route: 065
  34. PLAQUENIL [Suspect]
     Active Substance: HYDROXYCHLOROQUINE SULFATE
     Indication: RHEUMATOID ARTHRITIS
     Route: 065
  35. PLAQUENIL [Suspect]
     Active Substance: HYDROXYCHLOROQUINE SULFATE
     Indication: MOBILITY DECREASED
  36. HUMIRA [Suspect]
     Active Substance: ADALIMUMAB
     Indication: PAIN
  37. GOLD [Suspect]
     Active Substance: GOLD
     Indication: PAIN
  38. METHOTREXATE. [Suspect]
     Active Substance: METHOTREXATE
     Indication: PAIN
  39. PLAQUENIL [Suspect]
     Active Substance: HYDROXYCHLOROQUINE SULFATE
     Indication: PAIN
  40. TRAMADOL. [Suspect]
     Active Substance: TRAMADOL
     Indication: PRODUCT USED FOR UNKNOWN INDICATION
     Route: 065
  41. ENBREL [Suspect]
     Active Substance: ETANERCEPT
     Indication: JOINT STIFFNESS
  42. VOLTAREN [Suspect]
     Active Substance: DICLOFENAC SODIUM
     Indication: PAIN

REACTIONS (13)
  - Abdominal pain upper [Unknown]
  - Decreased appetite [Unknown]
  - Abdominal discomfort [Unknown]
  - Pharyngitis [Unknown]
  - Off label use [Unknown]
  - Weight decreased [Unknown]
  - Eating disorder [Unknown]
  - Ear infection [Unknown]
  - Headache [Unknown]
  - Deafness [Unknown]
  - Nausea [Unknown]
  - Vomiting [Unknown]
  - Dizziness [Unknown]
